FAERS Safety Report 14270910 (Version 2)
Quarter: 2018Q1

REPORT INFORMATION
  Report Type: Spontaneous
  Country: US (occurrence: US)
  Receive Date: 20171211
  Receipt Date: 20180222
  Transmission Date: 20180508
  Serious: No
  Sender: FDA-Public Use
  Company Number: US-ASTRAZENECA-2017SF25660

PATIENT
  Age: 23548 Day
  Sex: Male
  Weight: 127 kg

DRUGS (1)
  1. BYDUREON [Suspect]
     Active Substance: EXENATIDE
     Indication: TYPE 2 DIABETES MELLITUS
     Route: 058

REACTIONS (8)
  - Injection site pain [Unknown]
  - Underdose [Unknown]
  - Injection site scar [Unknown]
  - Needle issue [Unknown]
  - Injection site pruritus [Unknown]
  - Injection site mass [Unknown]
  - Drug dose omission [Unknown]
  - Intentional product use issue [Unknown]

NARRATIVE: CASE EVENT DATE: 20171203
